FAERS Safety Report 12235934 (Version 2)
Quarter: 2016Q2

REPORT INFORMATION
  Report Type: Spontaneous
  Country: TR (occurrence: TR)
  Receive Date: 20160404
  Receipt Date: 20160506
  Transmission Date: 20160815
  Serious: Yes (Hospitalization, Other)
  Sender: FDA-Public Use
  Company Number: TR-ASTELLAS-2016US012546

PATIENT
  Age: 25 Year
  Sex: Male

DRUGS (4)
  1. RAPAMYCIN [Concomitant]
     Active Substance: SIROLIMUS
     Indication: RENAL TRANSPLANT
     Dosage: UNK UNK, UNKNOWN FREQ.
     Route: 065
  2. METOPROLOL. [Concomitant]
     Active Substance: METOPROLOL
     Indication: PRODUCT USED FOR UNKNOWN INDICATION
     Dosage: UNK UNK, UNKNOWN FREQ.
     Route: 065
  3. TACROLIMUS SYSTEMIC [Suspect]
     Active Substance: TACROLIMUS
     Indication: RENAL TRANSPLANT
     Dosage: UNK UNK, UNKNOWN FREQ.
     Route: 065
  4. PREDNISOLONE. [Concomitant]
     Active Substance: PREDNISOLONE
     Indication: RENAL TRANSPLANT
     Dosage: UNK UNK, UNKNOWN FREQ.
     Route: 065

REACTIONS (11)
  - Page kidney [Unknown]
  - Oedema peripheral [Unknown]
  - Fall [Unknown]
  - Amoebiasis [Unknown]
  - Injury [Unknown]
  - Hypervolaemia [Unknown]
  - Haematoma [Recovering/Resolving]
  - Renal haemorrhage [Recovered/Resolved]
  - Renal impairment [Recovered/Resolved]
  - Pulmonary embolism [Recovered/Resolved]
  - Ecchymosis [Unknown]
